FAERS Safety Report 8772035 (Version 4)
Quarter: 2014Q2

REPORT INFORMATION
  Report Type: Report from Study
  Country: FR (occurrence: FR)
  Receive Date: 20120906
  Receipt Date: 20140416
  Transmission Date: 20141212
  Serious: Yes (Life-Threatening, Hospitalization, Other)
  Sender: FDA-Public Use
  Company Number: FR-009507513-1009FRA00073

PATIENT
  Age: 55 Year
  Sex: Female
  Weight: 65 kg

DRUGS (23)
  1. RALTEGRAVIR POTASSIUM [Suspect]
     Indication: HIV INFECTION
     Dosage: 800 MG, BID
     Route: 048
     Dates: start: 20100803, end: 20100920
  2. RALTEGRAVIR POTASSIUM [Suspect]
     Dosage: 400 MG, BID
     Route: 048
     Dates: start: 20101112
  3. EPIVIR [Suspect]
     Indication: HIV INFECTION
     Dosage: 300 MG, QD
     Route: 048
     Dates: start: 20100803, end: 20100920
  4. TENOFOVIR [Suspect]
     Indication: HIV INFECTION
     Dosage: 245 MG, QD
     Route: 048
     Dates: start: 20100803, end: 20100920
  5. ASPIRIN [Concomitant]
     Dosage: 160 MG, QD
     Route: 048
     Dates: start: 2010, end: 20100920
  6. ATORVASTATIN [Concomitant]
     Dosage: 40 MG, QD
     Route: 048
     Dates: start: 2010, end: 20100920
  7. LANSOPRAZOLE [Concomitant]
     Indication: PROPHYLAXIS
     Dosage: 30 MG, QD
     Route: 048
     Dates: start: 2010, end: 20100920
  8. CHONDROITIN SULFATE SODIUM [Concomitant]
     Indication: OSTEOARTHRITIS
     Dosage: 400 MG, QD
     Route: 048
     Dates: start: 2010, end: 20100920
  9. TRAMADOL HYDROCHLORIDE [Concomitant]
     Indication: HEADACHE
     Dosage: 50 MG, QD
     Route: 048
     Dates: start: 2010, end: 20100920
  10. RIFAMPIN [Suspect]
     Indication: TUBERCULOSIS
     Dosage: 600 MG, QD
     Route: 048
     Dates: start: 20100628, end: 20100920
  11. ISONIAZID [Suspect]
     Indication: TUBERCULOSIS
     Dosage: 250 MG, QD
     Route: 048
     Dates: start: 20100628, end: 20100920
  12. AUGMENTIN [Suspect]
     Indication: PYREXIA
     Dosage: 2 DF, QD
     Route: 048
     Dates: start: 20100907, end: 20100911
  13. CEFIXIM [Suspect]
     Indication: PYREXIA
     Dosage: 400 MG, QD
     Route: 048
     Dates: start: 20100911, end: 20100915
  14. MYCOPHENOLATE MOFETIL [Concomitant]
     Indication: LIVER TRANSPLANT
     Dosage: 3 G, QD
     Route: 048
     Dates: start: 20100922
  15. TACROLIMUS [Concomitant]
     Indication: LIVER TRANSPLANT
     Dosage: 5.5 MG, QD
     Route: 048
     Dates: start: 20100922
  16. PREDNISONE [Concomitant]
     Indication: LIVER TRANSPLANT
     Dosage: 20 MG, QD
     Route: 048
     Dates: start: 20100922
  17. VALACYCLOVIR HYDROCHLORIDE [Concomitant]
     Indication: LIVER TRANSPLANT
     Dosage: 6 G, QD
     Route: 048
     Dates: start: 20100922
  18. MOXIFLOXACIN HYDROCHLORIDE [Concomitant]
     Indication: TUBERCULOSIS
     Dosage: 400 MG, QD
     Route: 048
     Dates: start: 20100927
  19. MYAMBUTOL [Concomitant]
     Indication: TUBERCULOSIS
     Dosage: 1200 MG, QD
     Route: 048
     Dates: start: 20100927
  20. AMLODIPINE [Concomitant]
     Indication: PROPHYLAXIS
     Dosage: 5 MG, QD
     Route: 048
     Dates: start: 20100927
  21. ESOMEPRAZOLE [Concomitant]
     Indication: PROPHYLAXIS
     Dosage: 40 MG, QD
     Route: 048
     Dates: start: 20100927
  22. ENOXAPARIN SODIUM [Concomitant]
     Indication: PROPHYLAXIS
     Route: 058
     Dates: start: 20100922
  23. TRUVADA [Concomitant]
     Indication: HIV INFECTION
     Dosage: 1 DF, QD
     Route: 048
     Dates: start: 20101112

REACTIONS (2)
  - Hepatitis fulminant [Recovered/Resolved with Sequelae]
  - Hepatic artery thrombosis [Recovered/Resolved with Sequelae]
